FAERS Safety Report 23642510 (Version 1)
Quarter: 2024Q1

REPORT INFORMATION
  Report Type: Report from Study
  Country: US (occurrence: US)
  Receive Date: 20240318
  Receipt Date: 20240318
  Transmission Date: 20240409
  Serious: Yes (Death, Other)
  Sender: FDA-Public Use
  Company Number: US-MYLANLABS-2024M1020115

PATIENT
  Age: 27 Day
  Sex: Male

DRUGS (31)
  1. SILDENAFIL [Suspect]
     Active Substance: SILDENAFIL
     Indication: Product used for unknown indication
     Dosage: 0.13 MILLIGRAM, QD (AT 05:00 PM)
     Route: 042
     Dates: start: 20240208, end: 20240208
  2. SILDENAFIL [Suspect]
     Active Substance: SILDENAFIL
     Dosage: 0.390 MILLIGRAM, QD (0.130 MG EACH AT 1AM, 9AM AND 5PM)
     Route: 042
     Dates: start: 20240209, end: 20240209
  3. SILDENAFIL [Suspect]
     Active Substance: SILDENAFIL
     Dosage: 0.510 MILLIGRAM, QD (0.130 MG AT 1AM AND 9AM, 0.250MG AT 5PM)
     Route: 042
     Dates: start: 20240210, end: 20240210
  4. SILDENAFIL [Suspect]
     Active Substance: SILDENAFIL
     Dosage: 0.750 MILLIGRAM, QD (0.250 MG AT 1AM, 9AM AND 5PM)
     Route: 042
     Dates: start: 20240211, end: 20240211
  5. SILDENAFIL [Suspect]
     Active Substance: SILDENAFIL
     Dosage: 0.88 MILLIGRAM, QD (0.250 MG AT 1AM AND 9AM, 0.380 MG AT 5PM)
     Route: 042
     Dates: start: 20240212, end: 20240212
  6. SILDENAFIL [Suspect]
     Active Substance: SILDENAFIL
     Dosage: 1.14 MILLIGRAM, QD (0.380 MG AT 1AM AND 9AM AND 5PM)
     Route: 042
     Dates: start: 20240213, end: 20240213
  7. SILDENAFIL [Suspect]
     Active Substance: SILDENAFIL
     Dosage: 1.26 MILLIGRAM, QD (0.380 MG AT 1AM AND 9AM, 0.5 MG AT 5PM)
     Route: 042
     Dates: start: 20240214, end: 20240214
  8. SILDENAFIL [Suspect]
     Active Substance: SILDENAFIL
     Dosage: 1.5 MILLIGRAM, QD (0.5 MG AT 1AM AND 9AM, 0.5 MG AT 5PM)
     Route: 042
     Dates: start: 20240215, end: 20240215
  9. SILDENAFIL [Suspect]
     Active Substance: SILDENAFIL
     Dosage: 1.0 MILLIGRAM, QD (0.5 MG AT 1AM AND 9AM)
     Route: 042
     Dates: start: 20240216, end: 20240216
  10. SILDENAFIL [Suspect]
     Active Substance: SILDENAFIL
     Indication: Product used for unknown indication
     Dosage: 1.25 MILLIGRAM, QD (1.25 MG AT 5PM)
     Route: 065
     Dates: start: 20240216, end: 20240216
  11. SILDENAFIL [Suspect]
     Active Substance: SILDENAFIL
     Dosage: 3.75 MILLIGRAM, QD (1.250 MG EACH AT 1AM, 9AM AND 5PM)
     Route: 065
     Dates: start: 20240217, end: 20240217
  12. SILDENAFIL [Suspect]
     Active Substance: SILDENAFIL
     Dosage: 4 MILLIGRAM, QD (1.250 MG AT 1AM AND 9AM, 1.5 MG AT 5PM)
     Route: 065
     Dates: start: 20240218, end: 20240218
  13. SILDENAFIL [Suspect]
     Active Substance: SILDENAFIL
     Dosage: 4.5 MILLIGRAM, QD (1.500 MG EACH AT 1AM, 9AM AND 5PM)
     Route: 065
     Dates: start: 20240219, end: 20240219
  14. SILDENAFIL [Suspect]
     Active Substance: SILDENAFIL
     Dosage: 4.75 MILLIGRAM, QD (1.500 MG EACH AT 1AM AND 9AM, 1.750 MG AT 5PM)
     Route: 065
     Dates: start: 20240220, end: 20240220
  15. SILDENAFIL [Suspect]
     Active Substance: SILDENAFIL
     Dosage: 5.25 MILLIGRAM, QD (1.750 MG EACH AT 1AM, 9AM AND 5PM)
     Route: 065
     Dates: start: 20240221, end: 20240221
  16. SILDENAFIL [Suspect]
     Active Substance: SILDENAFIL
     Dosage: 5.9 MILLIGRAM, QD (1.750 MG EACH AT 1AM AND 9AM, 2.4MG AT 5PM)
     Route: 065
     Dates: start: 20240222, end: 20240222
  17. SILDENAFIL [Suspect]
     Active Substance: SILDENAFIL
     Dosage: 7.2 MILLIGRAM, QD (2.400 MG EACH AT 1AM, 9AM AND 5PM)
     Route: 065
     Dates: start: 20240223, end: 20240223
  18. SILDENAFIL [Suspect]
     Active Substance: SILDENAFIL
     Dosage: 4.8 MILLIGRAM, QD (2.400 MG EACH AT 1AM AND 9PM)
     Route: 065
     Dates: start: 20240224, end: 20240224
  19. PENICILLIN G [Concomitant]
     Active Substance: PENICILLIN G
     Dosage: UNK
     Route: 065
  20. INSULIN NOS [Concomitant]
     Active Substance: INSULIN NOS
     Dosage: UNK
     Route: 065
  21. FENTANYL [Concomitant]
     Active Substance: FENTANYL\FENTANYL CITRATE
     Dosage: UNK
     Route: 065
  22. HEPARIN [Concomitant]
     Active Substance: HEPARIN SODIUM
     Dosage: UNK
     Route: 065
  23. FAT EMULSION NOS [Concomitant]
     Active Substance: EGG PHOSPHOLIPIDS\SAFFLOWER OIL\SOYBEAN OIL
     Dosage: UNK
     Route: 065
  24. SODIUM CHLORIDE [Concomitant]
     Active Substance: SODIUM CHLORIDE
     Dosage: UNK
     Route: 065
  25. CAFFEINE [Concomitant]
     Active Substance: CAFFEINE
     Dosage: UNK
     Route: 065
  26. GLYCERIN [Concomitant]
     Active Substance: GLYCERIN
     Dosage: UNK
     Route: 065
  27. LASIX [Concomitant]
     Active Substance: FUROSEMIDE
     Dosage: UNK
     Route: 065
  28. NOREPINEPHRINE [Concomitant]
     Active Substance: NOREPINEPHRINE\NOREPINEPHRINE BITARTRATE
     Dosage: UNK
     Route: 065
  29. DOBUTAMINE [Concomitant]
     Active Substance: DOBUTAMINE HYDROCHLORIDE
     Dosage: UNK
     Route: 065
  30. OXYGEN [Concomitant]
     Active Substance: OXYGEN
     Dosage: UNK
     Route: 065
  31. ALBUMIN HUMAN [Concomitant]
     Active Substance: ALBUMIN HUMAN
     Dosage: UNK
     Route: 065

REACTIONS (3)
  - Necrotising colitis [Fatal]
  - Gastrointestinal ischaemia [Unknown]
  - Hypotension [Not Recovered/Not Resolved]

NARRATIVE: CASE EVENT DATE: 20240224
